FAERS Safety Report 6648122-9 (Version None)
Quarter: 2010Q1

REPORT INFORMATION
  Report Type: 
  Country: None (occurrence: None)
  Receive Date: 20100319
  Receipt Date: 20100304
  Transmission Date: 20100710
  Serious: Yes (Death, Hospitalization, Other)
  Sender: FDA-Public Use
  Company Number: 2009003419

PATIENT
  Sex: Male
  Weight: 92.0802 kg

DRUGS (18)
  1. ERLOTINIB (ERLOTINIB) (TABLET) (ERLOTINIB) [Suspect]
     Indication: OESOPHAGEAL CARCINOMA
     Dosage: (150 MG,QD), ORAL
     Route: 048
     Dates: start: 20090824, end: 20091102
  2. JANUVIA [Concomitant]
  3. BENAZEPRIL HYDROCHLORIDE [Concomitant]
  4. SIMVASTATIN [Concomitant]
  5. PRILOSEC [Concomitant]
  6. MULTIVITAMIN [Concomitant]
  7. ZOFRAN [Concomitant]
  8. XALATAN EYE DROPS (LATANOPROST) [Concomitant]
  9. DOCUSATE ( DOCUSATE) [Concomitant]
  10. INSULIN GLARGINE (INSULIN GLARGINE) [Concomitant]
  11. INSULIN LISPRO (INSULIN LISPRO) [Concomitant]
  12. ALBUTEROL [Concomitant]
  13. TRIMETHOPRIM [Concomitant]
  14. PREDNISONE TAB [Concomitant]
  15. OXYCODONE HCL [Concomitant]
  16. SIMETHICONE (DIMETICONE, ACTIVATED) [Concomitant]
  17. DALTEPARIN [Concomitant]
  18. ACETAMINOPHEN [Concomitant]

REACTIONS (26)
  - ANAEMIA [None]
  - BLOOD CREATININE INCREASED [None]
  - BLOOD UREA INCREASED [None]
  - CHEST PAIN [None]
  - CLOSTRIDIUM DIFFICILE COLITIS [None]
  - CONFUSIONAL STATE [None]
  - DIARRHOEA [None]
  - DYSPHAGIA [None]
  - FLUID OVERLOAD [None]
  - HYPERGLYCAEMIA [None]
  - HYPOALBUMINAEMIA [None]
  - HYPOTENSION [None]
  - INTERSTITIAL LUNG DISEASE [None]
  - LUNG CYST [None]
  - NAUSEA [None]
  - OEDEMA PERIPHERAL [None]
  - OLIGURIA [None]
  - ORGAN FAILURE [None]
  - PLEURAL EFFUSION [None]
  - PNEUMONIA [None]
  - PNEUMONIA BACTERIAL [None]
  - PULMONARY OEDEMA [None]
  - RADIATION PNEUMONITIS [None]
  - RESPIRATORY DISTRESS [None]
  - RESPIRATORY FAILURE [None]
  - SEPSIS [None]
